FAERS Safety Report 4456208-2 (Version None)
Quarter: 2004Q3

REPORT INFORMATION
  Report Type: 
  Country: None (occurrence: None)
  Receive Date: 20040920
  Receipt Date: 20040908
  Transmission Date: 20050211
  Serious: Yes (Other)
  Sender: FDA-Public Use
  Company Number: 2004232508ES

PATIENT
  Age: 27 Year
  Sex: Male

DRUGS (1)
  1. CLINDAMYCIN [Suspect]
     Indication: CYST REMOVAL
     Dosage: ORAL
     Route: 048

REACTIONS (1)
  - OESOPHAGEAL ULCER [None]
